FAERS Safety Report 24183448 (Version 1)
Quarter: 2024Q3

REPORT INFORMATION
  Report Type: Report from Study
  Country: CA (occurrence: CA)
  Receive Date: 20240807
  Receipt Date: 20240807
  Transmission Date: 20241017
  Serious: Yes (Other)
  Sender: TAKEDA
  Company Number: CA-TAKEDA-2023TUS079845

PATIENT
  Age: 63 Year
  Sex: Female

DRUGS (6)
  1. VEDOLIZUMAB [Suspect]
     Active Substance: VEDOLIZUMAB
     Indication: Colitis ulcerative
     Dosage: 300 MILLIGRAM
     Route: 042
     Dates: start: 20230510
  2. VEDOLIZUMAB [Suspect]
     Active Substance: VEDOLIZUMAB
     Indication: Colitis ulcerative
     Dosage: 108 MILLIGRAM, Q2WEEKS
     Route: 058
     Dates: start: 20230814
  3. ASACOL [Concomitant]
     Active Substance: MESALAMINE
     Dosage: UNK
  4. CANDESARTAN [Concomitant]
     Active Substance: CANDESARTAN
     Dosage: 32 MILLIGRAM
  5. PANTOPRAZOLE [Concomitant]
     Active Substance: PANTOPRAZOLE
     Dosage: 40 MILLIGRAM
  6. VITAMIN D [Concomitant]
     Active Substance: VITAMIN D NOS
     Dosage: 10000 INTERNATIONAL UNIT

REACTIONS (10)
  - Colitis [Not Recovered/Not Resolved]
  - Abdominal pain upper [Not Recovered/Not Resolved]
  - Mucous stools [Not Recovered/Not Resolved]
  - Frequent bowel movements [Not Recovered/Not Resolved]
  - Diarrhoea [Unknown]
  - Defaecation urgency [Unknown]
  - Therapeutic reaction time decreased [Not Recovered/Not Resolved]
  - Abdominal pain [Recovered/Resolved]
  - Flatulence [Unknown]
  - Fatigue [Unknown]

NARRATIVE: CASE EVENT DATE: 20240705
